FAERS Safety Report 12327109 (Version 1)
Quarter: 2016Q2

REPORT INFORMATION
  Report Type: Spontaneous
  Country: US (occurrence: None)
  Receive Date: 20160502
  Receipt Date: 20160502
  Transmission Date: 20160815
  Serious: Yes (Other)
  Sender: FDA-Public Use
  Company Number: None

PATIENT
  Age: 62 Year
  Sex: Female
  Weight: 67.13 kg

DRUGS (2)
  1. OBAGI NU-DERM [Suspect]
     Active Substance: HYDROQUINONE
     Indication: DRY SKIN
     Route: 062
     Dates: start: 20160421, end: 20160421
  2. VITAMINS ONLY [Concomitant]

REACTIONS (6)
  - Blister [None]
  - Product odour abnormal [None]
  - Skin disorder [None]
  - Product quality issue [None]
  - Rash [None]
  - Swelling [None]

NARRATIVE: CASE EVENT DATE: 20160421
